FAERS Safety Report 15592143 (Version 1)
Quarter: 2018Q4

REPORT INFORMATION
  Report Type: Report from Study
  Country: CO (occurrence: CO)
  Receive Date: 20181106
  Receipt Date: 20181106
  Transmission Date: 20190205
  Serious: Yes (Hospitalization)
  Sender: FDA-Public Use
  Company Number: CO-SA-2018SA301318

PATIENT
  Age: 89 Year
  Sex: Male

DRUGS (3)
  1. RIVASTIGMINE. [Concomitant]
     Active Substance: RIVASTIGMINE
     Indication: DEMENTIA ALZHEIMER^S TYPE
     Dosage: 1.5 MG, QD
     Route: 048
     Dates: start: 2016
  2. JANUMET [Concomitant]
     Active Substance: METFORMIN HYDROCHLORIDE\SITAGLIPTIN PHOSPHATE
     Dosage: UNK
  3. INSULIN GLARGINE [Suspect]
     Active Substance: INSULIN GLARGINE
     Indication: TYPE 2 DIABETES MELLITUS
     Dosage: 8IU AND 5 IU, BID
     Route: 058
     Dates: start: 201806

REACTIONS (5)
  - Product prescribing error [Unknown]
  - Diarrhoea haemorrhagic [Recovered/Resolved]
  - Upper limb fracture [Recovering/Resolving]
  - Fall [Unknown]
  - Intestinal obstruction [Recovered/Resolved]

NARRATIVE: CASE EVENT DATE: 201806
